FAERS Safety Report 8015977-5 (Version None)
Quarter: 2011Q4

REPORT INFORMATION
  Report Type: 
  Country: None (occurrence: None)
  Receive Date: 20111230
  Receipt Date: 20111223
  Transmission Date: 20120403
  Serious: Yes (Hospitalization)
  Sender: FDA-Public Use
  Company Number: AT-ABBOTT-11P-009-0886548-04

PATIENT
  Sex: Female
  Weight: 56 kg

DRUGS (12)
  1. PREDNISOLONE [Concomitant]
  2. FOLSAN [Concomitant]
     Indication: VITAMIN SUPPLEMENTATION
     Dates: start: 20091015
  3. HUMIRA [Suspect]
     Route: 058
  4. FOLSAN [Concomitant]
     Indication: PROPHYLAXIS
     Dates: start: 20090716
  5. FOLSAN [Concomitant]
     Indication: OSTEOPOROSIS PROPHYLAXIS
  6. HUMIRA [Suspect]
     Indication: CROHN'S DISEASE
     Route: 058
     Dates: start: 20080212, end: 20111114
  7. PREDNISOLONE [Concomitant]
     Dates: start: 20090609, end: 20090622
  8. HUMIRA [Suspect]
     Dosage: WEEK 2
  9. HUMIRA [Suspect]
     Dosage: BASELINE
     Dates: start: 20080212
  10. PREDNISOLONE [Concomitant]
     Indication: CROHN'S DISEASE
     Dates: start: 20090527, end: 20090603
  11. PURINETHOL [Concomitant]
     Indication: CROHN'S DISEASE
     Dates: start: 20110917
  12. FOLSAN [Concomitant]

REACTIONS (1)
  - CROHN'S DISEASE [None]
